FAERS Safety Report 4633187-6 (Version None)
Quarter: 2005Q2

REPORT INFORMATION
  Report Type: 
  Country: None (occurrence: None)
  Receive Date: 20050411
  Receipt Date: 20050411
  Transmission Date: 20051028
  Serious: No
  Sender: FDA-Public Use
  Company Number: None

PATIENT
  Sex: Female
  Weight: 67 kg

DRUGS (2)
  1. FLUOROURACIL [Suspect]
     Indication: ANAL CANCER
     Dosage: 100 MG/M2/IV DAY IV CONTINUOUS INFUSION DAYS 1-4
     Route: 042
     Dates: start: 20050228
  2. MITOMYCIN [Suspect]
     Dosage: 10 MG/M2 DAY 1. REPEAT DAY 29

REACTIONS (2)
  - ABDOMINAL PAIN [None]
  - VOMITING [None]
